APPROVED DRUG PRODUCT: FLUOCINONIDE
Active Ingredient: FLUOCINONIDE
Strength: 0.05%
Dosage Form/Route: SOLUTION;TOPICAL
Application: A071535 | Product #001
Applicant: COSETTE PHARMACEUTICALS INC
Approved: Dec 2, 1988 | RLD: No | RS: No | Type: DISCN